FAERS Safety Report 4451313-9 (Version None)
Quarter: 2004Q3

REPORT INFORMATION
  Report Type: 
  Country: None (occurrence: None)
  Receive Date: 20040913
  Receipt Date: 20040706
  Transmission Date: 20050211
  Serious: No
  Sender: FDA-Public Use
  Company Number: 2004-BP-05389BP

PATIENT
  Age: 75 Year
  Sex: Female

DRUGS (12)
  1. SPIRIVA [Suspect]
     Indication: CHRONIC OBSTRUCTIVE AIRWAYS DISEASE
     Dosage: 18 MCG (18 MCG), IH
     Route: 055
     Dates: start: 20040707, end: 20040712
  2. PULMICORT [Concomitant]
  3. ZYRTEC [Concomitant]
  4. FOSAMAX [Concomitant]
  5. SINGULAIR [Concomitant]
  6. VITAMIN E [Concomitant]
  7. OXYGEN (OXYGEN) [Concomitant]
  8. CALCIUM + D [Concomitant]
  9. FLONASE [Concomitant]
  10. COMBIVENT [Concomitant]
  11. PULMICORT [Concomitant]
  12. MAG-SR [Concomitant]

REACTIONS (1)
  - DYSPNOEA EXACERBATED [None]
